FAERS Safety Report 19711728 (Version 2)
Quarter: 2021Q3

REPORT INFORMATION
  Report Type: Spontaneous
  Country: AU (occurrence: AU)
  Receive Date: 20210816
  Receipt Date: 20210902
  Transmission Date: 20211014
  Serious: Yes (Other)
  Sender: FDA-Public Use
  Company Number: AU-BAUSCH-BL-2021-027142

PATIENT
  Age: 87 Year
  Sex: Female

DRUGS (5)
  1. PREDNISOLONE. [Suspect]
     Active Substance: PREDNISOLONE
     Indication: PRODUCT USED FOR UNKNOWN INDICATION
     Route: 065
  2. PROLIA [Suspect]
     Active Substance: DENOSUMAB
     Indication: PRODUCT USED FOR UNKNOWN INDICATION
     Route: 065
  3. ATORVASTATIN [Concomitant]
     Active Substance: ATORVASTATIN
     Indication: PRODUCT USED FOR UNKNOWN INDICATION
  4. ASPIRIN. [Concomitant]
     Active Substance: ASPIRIN
     Indication: PRODUCT USED FOR UNKNOWN INDICATION
  5. IRBESARTAN?HYDROCHLOROTHIAZIDE [Concomitant]
     Active Substance: HYDROCHLOROTHIAZIDE\IRBESARTAN
     Indication: PRODUCT USED FOR UNKNOWN INDICATION

REACTIONS (5)
  - Ludwig angina [Unknown]
  - Giant cell arteritis [Unknown]
  - C-reactive protein increased [Unknown]
  - Normocytic anaemia [Unknown]
  - White blood cell count increased [Unknown]
